FAERS Safety Report 7219522-3 (Version None)
Quarter: 2011Q1

REPORT INFORMATION
  Report Type: 
  Country: None (occurrence: None)
  Receive Date: 20110111
  Receipt Date: 20110107
  Transmission Date: 20110831
  Serious: Yes (Other)
  Sender: FDA-Public Use
  Company Number: DE-SANOFI-AVENTIS-2011SA001173

PATIENT
  Age: 63 Year
  Sex: Male

DRUGS (3)
  1. MULTAQ [Suspect]
     Route: 048
  2. MULTAQ [Suspect]
     Indication: ATRIAL FIBRILLATION
     Route: 048
     Dates: start: 20101001
  3. MULTAQ [Suspect]
     Dosage: DOSAGE: 2X1/2 TABLET
     Route: 048

REACTIONS (4)
  - FEELING ABNORMAL [None]
  - UNDERDOSE [None]
  - MALAISE [None]
  - ATRIAL FIBRILLATION [None]
